FAERS Safety Report 18276688 (Version 1)
Quarter: 2020Q3

REPORT INFORMATION
  Report Type: Spontaneous
  Country: US (occurrence: US)
  Receive Date: 20200917
  Receipt Date: 20200917
  Transmission Date: 20201103
  Serious: Yes (Hospitalization)
  Sender: FDA-Public Use
  Company Number: US-LEADINGPHARMA-US-2020LEALIT00022

PATIENT
  Age: 48 Year
  Sex: Female

DRUGS (8)
  1. LORAZEPAM TABLETS USP [Suspect]
     Active Substance: LORAZEPAM
     Indication: AUTONOMIC NERVOUS SYSTEM IMBALANCE
  2. LEVOTHYROXINE. [Concomitant]
     Active Substance: LEVOTHYROXINE
     Indication: HYPOPITUITARISM
     Dosage: 88 MCG DAILY
     Route: 065
  3. LORAZEPAM TABLETS USP [Suspect]
     Active Substance: LORAZEPAM
     Indication: MUTISM
  4. ARIPIPRAZOLE. [Interacting]
     Active Substance: ARIPIPRAZOLE
     Indication: DELIRIUM
     Route: 065
  5. ARIPIPRAZOLE. [Interacting]
     Active Substance: ARIPIPRAZOLE
     Indication: PSYCHOTIC DISORDER
  6. LORAZEPAM TABLETS USP [Suspect]
     Active Substance: LORAZEPAM
     Indication: NEGATIVISM
  7. LORAZEPAM TABLETS USP [Suspect]
     Active Substance: LORAZEPAM
     Indication: CATATONIA
     Dosage: STARTED ON SCHEDULED LORAZEPAM
     Route: 042
  8. HYDROCORTISONE. [Concomitant]
     Active Substance: HYDROCORTISONE
     Route: 065

REACTIONS (4)
  - Screaming [Recovering/Resolving]
  - Delirium [Unknown]
  - Psychotic disorder [Unknown]
  - Agitation [Recovering/Resolving]
